FAERS Safety Report 4515067-X (Version None)
Quarter: 2004Q4

REPORT INFORMATION
  Report Type: 
  Country: None (occurrence: None)
  Receive Date: 20041201
  Receipt Date: 20041115
  Transmission Date: 20050328
  Serious: Yes (Death)
  Sender: FDA-Public Use
  Company Number: DE-MERCK-0411DEU00325

PATIENT
  Age: 60 Year
  Sex: Male
  Weight: 123 kg

DRUGS (8)
  1. VIOXX [Suspect]
     Indication: RHEUMATOID ARTHRITIS
     Route: 048
     Dates: start: 20030326, end: 20030707
  2. INSULIN [Concomitant]
     Route: 051
  3. LEFLUNOMIDE [Concomitant]
     Route: 048
     Dates: start: 20030101
  4. ETANERCEPT [Concomitant]
     Route: 051
  5. PREDNISOLONE [Concomitant]
     Route: 048
  6. AMLODIPINE BESYLATE [Concomitant]
     Route: 048
  7. ESOMEPRAZOLE MAGNESIUM [Concomitant]
     Route: 048
  8. CALCIUM CARBONATE AND CHOLECALCIFEROL [Concomitant]
     Route: 048

REACTIONS (2)
  - CARDIAC ARREST [None]
  - SUDDEN CARDIAC DEATH [None]
